FAERS Safety Report 20025873 (Version 1)
Quarter: 2021Q4

REPORT INFORMATION
  Report Type: Spontaneous
  Country: IT (occurrence: IT)
  Receive Date: 20211102
  Receipt Date: 20211102
  Transmission Date: 20220303
  Serious: Yes (Other)
  Sender: FDA-Public Use
  Company Number: None

PATIENT
  Age: 64 Year
  Sex: Female
  Weight: 81 kg

DRUGS (2)
  1. ETOPOSIDE [Suspect]
     Active Substance: ETOPOSIDE
     Indication: Lung adenocarcinoma
     Dosage: 85 MG
     Route: 042
     Dates: start: 20211004, end: 20211004
  2. CISPLATIN [Concomitant]
     Active Substance: CISPLATIN
     Indication: Lung adenocarcinoma
     Dosage: 85 MG
     Route: 042
     Dates: start: 20211004, end: 20211004

REACTIONS (6)
  - Headache [Recovered/Resolved]
  - Flushing [Recovered/Resolved]
  - Hypotension [Recovered/Resolved]
  - Swelling face [Recovered/Resolved]
  - Oxygen saturation decreased [Recovered/Resolved]
  - Bronchospasm [Recovered/Resolved]

NARRATIVE: CASE EVENT DATE: 20211004
